FAERS Safety Report 9899419 (Version 1)
Quarter: 2014Q1

REPORT INFORMATION
  Report Type: Spontaneous
  Country: FR (occurrence: FR)
  Receive Date: 20140214
  Receipt Date: 20140214
  Transmission Date: 20141002
  Serious: Yes (Hospitalization, Other)
  Sender: FDA-Public Use
  Company Number: FR-BAXTER-2014BAX006181

PATIENT
  Age: 63 Year
  Sex: Female

DRUGS (12)
  1. ENDOXAN 50 MG, COMPRIM? ENROB? [Suspect]
     Indication: PRODUCT USED FOR UNKNOWN INDICATION
     Route: 048
     Dates: start: 201311
  2. ENDOXAN 50 MG, COMPRIM? ENROB? [Suspect]
     Route: 048
     Dates: start: 20140123, end: 20140123
  3. BACTRIM [Suspect]
     Indication: PRODUCT USED FOR UNKNOWN INDICATION
     Route: 048
     Dates: start: 201311, end: 20140122
  4. ROCEPHINE [Suspect]
     Indication: PNEUMONIA
     Route: 048
     Dates: start: 20140108, end: 20140117
  5. ZELITREX [Suspect]
     Indication: PRODUCT USED FOR UNKNOWN INDICATION
     Route: 048
     Dates: start: 201311, end: 20140122
  6. DEXAMETHASONE [Suspect]
     Indication: PRODUCT USED FOR UNKNOWN INDICATION
     Route: 042
     Dates: start: 201311
  7. DEXAMETHASONE [Suspect]
     Route: 042
     Dates: start: 20140123, end: 20140123
  8. VELCADE [Suspect]
     Indication: PRODUCT USED FOR UNKNOWN INDICATION
     Route: 042
     Dates: start: 201311
  9. VELCADE [Suspect]
     Route: 042
     Dates: start: 20140123, end: 20140123
  10. ORACILLINE [Suspect]
     Indication: PRODUCT USED FOR UNKNOWN INDICATION
     Route: 048
     Dates: start: 201311, end: 20140124
  11. LASILIX [Suspect]
     Indication: PRODUCT USED FOR UNKNOWN INDICATION
     Route: 065
  12. EUPRESSYL [Suspect]
     Indication: PRODUCT USED FOR UNKNOWN INDICATION
     Route: 065

REACTIONS (2)
  - Drug reaction with eosinophilia and systemic symptoms [Recovering/Resolving]
  - Pneumonia [Unknown]
